FAERS Safety Report 9601302 (Version 1)
Quarter: 2013Q4

REPORT INFORMATION
  Report Type: Report from Study
  Country: US (occurrence: US)
  Receive Date: 20131006
  Receipt Date: 20131006
  Transmission Date: 20140711
  Serious: Yes (Life-Threatening, Hospitalization)
  Sender: FDA-Public Use
  Company Number: US-009507513-1310USA001243

PATIENT
  Age: 63 Year
  Sex: Male

DRUGS (2)
  1. VORINOSTAT [Suspect]
     Indication: GLIOBLASTOMA
     Dosage: DOSE 400 MW QD D1-7 AND D15-21
     Route: 048
     Dates: start: 20130718, end: 20130925
  2. BEVACIZUMAB [Suspect]
     Indication: GLIOBLASTOMA
     Dosage: DOSE 10MG/KG D1 AND D15
     Route: 042
     Dates: start: 20130718, end: 20130925

REACTIONS (1)
  - Large intestine perforation [Unknown]
